FAERS Safety Report 15353345 (Version 1)
Quarter: 2018Q3

REPORT INFORMATION
  Report Type: Spontaneous
  Country: JP (occurrence: JP)
  Receive Date: 20180905
  Receipt Date: 20180905
  Transmission Date: 20181010
  Serious: Yes (Hospitalization)
  Sender: FDA-Public Use
  Company Number: JP-SPECTRUM PHARMACEUTICALS, INC.-18-F-JP-00321

PATIENT
  Sex: Male

DRUGS (1)
  1. FOLOTYN [Suspect]
     Active Substance: PRALATREXATE
     Indication: ANGIOIMMUNOBLASTIC T-CELL LYMPHOMA
     Route: 042

REACTIONS (1)
  - Pneumocystis jirovecii pneumonia [Recovered/Resolved]

NARRATIVE: CASE EVENT DATE: 201808
